FAERS Safety Report 7399664-2 (Version None)
Quarter: 2011Q2

REPORT INFORMATION
  Report Type: 
  Country: None (occurrence: None)
  Receive Date: 20110407
  Receipt Date: 20100825
  Transmission Date: 20111010
  Serious: No
  Sender: FDA-Public Use
  Company Number: US-KINGPHARMUSA00001-K201001077

PATIENT
  Sex: Female

DRUGS (17)
  1. OXYCONTIN [Concomitant]
     Dosage: 20 MG, QID
  2. ASCORBIC ACID [Concomitant]
     Dosage: UNK
  3. HORMONES NOS [Concomitant]
  4. VITAMIN D [Concomitant]
  5. PANTETHINE [Concomitant]
     Dosage: UNK
     Route: 048
  6. PROBIOTICA [Concomitant]
  7. JOINTEX [Concomitant]
  8. BENADRYL [Concomitant]
     Dosage: TID TO QID
  9. VITAMIN B-12 [Concomitant]
     Dosage: UNK
  10. SKELAXIN [Suspect]
     Indication: NEURALGIA
     Dosage: 800 MG, QID
     Route: 048
     Dates: start: 20100814
  11. STOOL SOFTENER [Concomitant]
  12. FOLIC ACID [Concomitant]
     Dosage: UNK
  13. DIAZEPAM [Concomitant]
     Dosage: UNK
  14. SKELAXIN [Suspect]
     Indication: MUSCULOSKELETAL DISORDER
  15. OXYCODONE HCL [Concomitant]
     Indication: BREAKTHROUGH PAIN
     Dosage: 15 MG, QID
  16. TRAZODONE [Concomitant]
     Dosage: 300 MG, QHS
  17. ROYAL JELLY [Concomitant]

REACTIONS (6)
  - NAUSEA [None]
  - RHINORRHOEA [None]
  - ABDOMINAL PAIN [None]
  - FLATULENCE [None]
  - ABDOMINAL DISCOMFORT [None]
  - MALAISE [None]
